FAERS Safety Report 6259116-X (Version None)
Quarter: 2009Q3

REPORT INFORMATION
  Report Type: 
  Country: None (occurrence: None)
  Receive Date: 20090707
  Receipt Date: 20090629
  Transmission Date: 20100115
  Serious: Yes (Hospitalization)
  Sender: FDA-Public Use
  Company Number: US-ABBOTT-09P-163-0583117-00

PATIENT
  Sex: Female
  Weight: 63.56 kg

DRUGS (3)
  1. HUMIRA [Suspect]
     Indication: RHEUMATOID ARTHRITIS
     Route: 058
     Dates: start: 20070601, end: 20090612
  2. PREDNISONE TAB [Concomitant]
     Indication: RHEUMATOID ARTHRITIS
     Dosage: 5MG
     Route: 048
  3. PRILOSEC [Concomitant]
     Indication: GASTROOESOPHAGEAL REFLUX DISEASE
     Route: 048

REACTIONS (8)
  - ASTHENIA [None]
  - CARDIOMEGALY [None]
  - DIARRHOEA [None]
  - ENTEROCOLITIS VIRAL [None]
  - FATIGUE [None]
  - PULMONARY OEDEMA [None]
  - RESPIRATORY DISTRESS [None]
  - URINARY TRACT INFECTION [None]
